FAERS Safety Report 4522472-4 (Version None)
Quarter: 2004Q4

REPORT INFORMATION
  Report Type: 
  Country: None (occurrence: None)
  Receive Date: 20041207
  Receipt Date: 20041130
  Transmission Date: 20050328
  Serious: Yes (Hospitalization)
  Sender: FDA-Public Use
  Company Number: 200420936BWH

PATIENT
  Age: 64 Year
  Sex: Male
  Weight: 87.5442 kg

DRUGS (2)
  1. LEVITRA [Suspect]
     Indication: ERECTILE DYSFUNCTION
     Dosage: 20 MG, TOTAL DAILY, ORAL
     Route: 048
     Dates: start: 20041001, end: 20041031
  2. M.V.I. [Concomitant]

REACTIONS (12)
  - CHILLS [None]
  - DIZZINESS [None]
  - DYSARTHRIA [None]
  - ERYTHEMA [None]
  - FEELING HOT [None]
  - FLUSHING [None]
  - HEADACHE [None]
  - HYPERHIDROSIS [None]
  - LABYRINTHITIS [None]
  - NAUSEA [None]
  - PALLOR [None]
  - VOMITING [None]
